FAERS Safety Report 10189485 (Version 1)
Quarter: 2014Q2

REPORT INFORMATION
  Report Type: Spontaneous
  Country: GB (occurrence: GB)
  Receive Date: 20140522
  Receipt Date: 20140522
  Transmission Date: 20141212
  Serious: Yes (Other)
  Sender: FDA-Public Use
  Company Number: GB-GILEAD-2014-0103101

PATIENT
  Sex: Male

DRUGS (1)
  1. EVIPLERA [Suspect]
     Indication: HIV INFECTION
     Dosage: 25 MG, QD
     Route: 065
     Dates: start: 2013

REACTIONS (2)
  - Cardiac arrest [Unknown]
  - Long QT syndrome [Unknown]
